FAERS Safety Report 17081911 (Version 1)
Quarter: 2019Q4

REPORT INFORMATION
  Report Type: Spontaneous
  Country: US (occurrence: US)
  Receive Date: 20191030
  Receipt Date: 20191030
  Transmission Date: 20200122
  Serious: Yes (Hospitalization)
  Sender: FDA-Public Use
  Company Number: None

PATIENT
  Age: 7 Year
  Sex: Female

DRUGS (7)
  1. ENBREL [Suspect]
     Active Substance: ETANERCEPT
     Indication: JUVENILE IDIOPATHIC ARTHRITIS
     Route: 058
     Dates: start: 20170201
  2. FOLIC ACID. [Concomitant]
     Active Substance: FOLIC ACID
  3. METHOTRAXATE [Concomitant]
     Active Substance: METHOTREXATE SODIUM
  4. NAPROSYN [Concomitant]
     Active Substance: NAPROXEN
  5. PROBIOTIC [Concomitant]
     Active Substance: PROBIOTICS NOS
  6. PREDNISONE. [Concomitant]
     Active Substance: PREDNISONE
  7. LEUCOVRA [Concomitant]

REACTIONS (1)
  - Hospitalisation [None]

NARRATIVE: CASE EVENT DATE: 20191030
